FAERS Safety Report 7470569-1 (Version None)
Quarter: 2011Q2

REPORT INFORMATION
  Report Type: 
  Country: None (occurrence: None)
  Receive Date: 20110510
  Receipt Date: 20110426
  Transmission Date: 20111010
  Serious: Yes (Life-Threatening, Hospitalization, Disabling)
  Sender: FDA-Public Use
  Company Number: US-JNJFOC-20110400535

PATIENT
  Sex: Female
  Weight: 104.33 kg

DRUGS (11)
  1. CIPRO [Concomitant]
     Indication: ABSCESS
  2. LEXAPRO [Concomitant]
     Indication: DEPRESSION
  3. LOFIBRA [Concomitant]
     Indication: HYPERLIPIDAEMIA
  4. SAVELLA [Concomitant]
  5. OMEPRAZOLE [Concomitant]
     Indication: GASTROOESOPHAGEAL REFLUX DISEASE
  6. VANCOMYCIN [Concomitant]
     Indication: ABSCESS
  7. REMICADE [Suspect]
     Indication: CROHN'S DISEASE
     Route: 042
  8. LORAZEPAM [Concomitant]
     Indication: ANXIETY
  9. SIMETHICONE [Concomitant]
     Indication: FLATULENCE
  10. FENTANYL [Concomitant]
     Indication: PAIN
  11. LOVASTATIN [Concomitant]
     Indication: HYPERLIPIDAEMIA

REACTIONS (4)
  - HERNIA [None]
  - IMPAIRED HEALING [None]
  - CARDIAC FAILURE CONGESTIVE [None]
  - STRESS CARDIOMYOPATHY [None]
